FAERS Safety Report 5107283-3 (Version None)
Quarter: 2006Q3

REPORT INFORMATION
  Report Type: 
  Country: None (occurrence: None)
  Receive Date: 20060914
  Receipt Date: 20060830
  Transmission Date: 20061208
  Serious: No
  Sender: FDA-Public Use
  Company Number: TPA2006A01470

PATIENT
  Sex: Female
  Weight: 53.5244 kg

DRUGS (5)
  1. ROZEREM [Suspect]
     Indication: INSOMNIA
     Dosage: 8 MG, PRN, QHS, PER ORAL
     Route: 048
     Dates: start: 20060826
  2. BENICAR [Concomitant]
  3. LOTREL [Concomitant]
  4. FOSAMAX [Concomitant]
  5. ADVAIR (FLUTICASONE PROPIONATE, SALMETEROL) [Concomitant]

REACTIONS (3)
  - DRUG INEFFECTIVE [None]
  - INCORRECT DOSE ADMINISTERED [None]
  - INSOMNIA [None]
